FAERS Safety Report 8185667-7 (Version None)
Quarter: 2012Q1

REPORT INFORMATION
  Report Type: 
  Country: None (occurrence: None)
  Receive Date: 20120305
  Receipt Date: 20120301
  Transmission Date: 20120608
  Serious: Yes (Death)
  Sender: FDA-Public Use
  Company Number: CHPA2012US003568

PATIENT
  Age: 71 Year
  Sex: Female

DRUGS (1)
  1. KERI UNKNOWN [Suspect]
     Indication: RASH
     Dosage: UNK, UNK
     Route: 061
     Dates: end: 19950101

REACTIONS (1)
  - OVARIAN CANCER [None]
